FAERS Safety Report 22112999 (Version 1)
Quarter: 2023Q1

REPORT INFORMATION
  Report Type: Report from Study
  Country: BR (occurrence: BR)
  Receive Date: 20230320
  Receipt Date: 20230320
  Transmission Date: 20230418
  Serious: Yes (Disabling)
  Sender: FDA-Public Use
  Company Number: BR-CELLTRION INC.-2023BR005749

PATIENT

DRUGS (1)
  1. INFLIXIMAB [Suspect]
     Active Substance: INFLIXIMAB
     Indication: Product used for unknown indication
     Dosage: UNK
     Route: 042
     Dates: start: 20221027

REACTIONS (6)
  - Bedridden [Unknown]
  - Illness [Unknown]
  - Vomiting [Unknown]
  - Pyrexia [Unknown]
  - Intentional dose omission [Unknown]
  - Therapy interrupted [Unknown]
